FAERS Safety Report 5333144-0 (Version None)
Quarter: 2007Q2

REPORT INFORMATION
  Report Type: 
  Country: None (occurrence: None)
  Receive Date: 20070521
  Receipt Date: 20070521
  Transmission Date: 20071010
  Serious: Yes (Disabling, Other)
  Sender: FDA-Public Use
  Company Number: None

PATIENT
  Age: 52 Year
  Sex: Male
  Weight: 63.5036 kg

DRUGS (4)
  1. NORVIR [Suspect]
     Indication: ACQUIRED IMMUNODEFICIENCY SYNDROME
     Dosage: 100MG TWICE A DAY PO
     Route: 048
     Dates: start: 20030610, end: 20070519
  2. NORVIR [Suspect]
     Indication: HIV INFECTION
     Dosage: 100MG TWICE A DAY PO
     Route: 048
     Dates: start: 20030610, end: 20070519
  3. NASAREL [Suspect]
     Indication: RHINITIS ALLERGIC
     Dosage: 2 SPRAYS PER NOSTRIL TWICE A DAY NASAL
     Route: 045
     Dates: start: 20060515, end: 20070515
  4. NASAREL [Suspect]
     Indication: SINUSITIS
     Dosage: 2 SPRAYS PER NOSTRIL TWICE A DAY NASAL
     Route: 045
     Dates: start: 20060515, end: 20070515

REACTIONS (1)
  - DRUG INTERACTION [None]
